FAERS Safety Report 14278400 (Version 1)
Quarter: 2017Q4

REPORT INFORMATION
  Report Type: Spontaneous
  Country: JP (occurrence: JP)
  Receive Date: 20171211
  Receipt Date: 20171211
  Transmission Date: 20180321
  Serious: Yes (Disabling)
  Sender: FDA-Public Use
  Company Number: JP-OTSUKA-03100-JPN-06-0374

PATIENT
  Age: 79 Year
  Sex: Female
  Weight: 58 kg

DRUGS (6)
  1. ABILIFY [Suspect]
     Active Substance: ARIPIPRAZOLE
     Indication: EMOTIONAL DISORDER
  2. ABILIFY [Suspect]
     Active Substance: ARIPIPRAZOLE
     Indication: DELIRIUM
     Dosage: 6 MG, QD
     Route: 048
     Dates: start: 20060628, end: 20060808
  3. TETRAMIDE [Concomitant]
     Active Substance: MIANSERIN
     Indication: INSOMNIA
     Dosage: 10 MG, QD
     Route: 048
     Dates: start: 20051011, end: 20060808
  4. TETRAMIDE [Concomitant]
     Active Substance: MIANSERIN
     Indication: DELIRIUM
  5. ABILIFY [Suspect]
     Active Substance: ARIPIPRAZOLE
     Indication: DELIRIUM
     Dosage: 3 MG, BID
     Route: 048
     Dates: start: 20060628, end: 20060808
  6. ABILIFY [Suspect]
     Active Substance: ARIPIPRAZOLE
     Indication: EMOTIONAL DISORDER

REACTIONS (2)
  - Dysphagia [Recovered/Resolved]
  - Dyskinesia [Recovered/Resolved]

NARRATIVE: CASE EVENT DATE: 20060723
